FAERS Safety Report 6386466-9 (Version None)
Quarter: 2009Q4

REPORT INFORMATION
  Report Type: 
  Country: None (occurrence: None)
  Receive Date: 20091002
  Receipt Date: 20090702
  Transmission Date: 20100525
  Serious: No
  Sender: FDA-Public Use
  Company Number: US-ASTRAZENECA-2009UW13794

PATIENT
  Age: 81 Year
  Sex: Female
  Weight: 63 kg

DRUGS (5)
  1. ARIMIDEX [Suspect]
     Route: 048
     Dates: start: 20050101, end: 20060101
  2. CALCIUM WITH VITAMIN D [Concomitant]
  3. HYDROCHLOROTHIAZIDE [Concomitant]
  4. THYROID TAB [Concomitant]
  5. TAMOXIFEN CITRATE [Concomitant]

REACTIONS (5)
  - ALOPECIA [None]
  - BLOOD CHOLESTEROL INCREASED [None]
  - BONE DENSITY ABNORMAL [None]
  - BONE PAIN [None]
  - HOT FLUSH [None]
